FAERS Safety Report 20857632 (Version 2)
Quarter: 2025Q2

REPORT INFORMATION
  Report Type: Report from Study
  Country: ES (occurrence: DE)
  Receive Date: 20220521
  Receipt Date: 20250610
  Transmission Date: 20250716
  Serious: Yes (Other)
  Sender: AUROBINDO
  Company Number: DE-NORGINE LIMITED-NOR202201723

PATIENT
  Age: 64 Year
  Sex: Female

DRUGS (2)
  1. SIMVASTATIN [Interacting]
     Active Substance: SIMVASTATIN
     Indication: Hepatic cirrhosis
     Dosage: 40 MILLIGRAM, ONCE A DAY
     Route: 048
  2. RIFAXIMIN [Interacting]
     Active Substance: RIFAXIMIN
     Indication: Hepatic cirrhosis
     Dosage: 400 MILLIGRAM, 3 TIMES A DAY
     Route: 065

REACTIONS (4)
  - Hepatotoxicity [Unknown]
  - Musculoskeletal toxicity [Unknown]
  - Rhabdomyolysis [Unknown]
  - Drug interaction [Unknown]
